FAERS Safety Report 7271164-X (Version None)
Quarter: 2011Q1

REPORT INFORMATION
  Report Type: 
  Country: None (occurrence: None)
  Receive Date: 20110202
  Receipt Date: 20110127
  Transmission Date: 20110831
  Serious: No
  Sender: FDA-Public Use
  Company Number: US-PFIZER INC-2011020091

PATIENT
  Sex: Female

DRUGS (1)
  1. DILANTIN [Suspect]
     Indication: CONVULSION
     Dosage: 100 MG, 1X/DAY
     Route: 048

REACTIONS (5)
  - NERVOUS SYSTEM DISORDER [None]
  - MALAISE [None]
  - DRUG ADMINISTRATION ERROR [None]
  - GASTRIC DISORDER [None]
  - HEPATIC ENZYME INCREASED [None]
